FAERS Safety Report 24680515 (Version 1)
Quarter: 2024Q4

REPORT INFORMATION
  Report Type: Spontaneous
  Country: US (occurrence: US)
  Receive Date: 20241129
  Receipt Date: 20241129
  Transmission Date: 20250115
  Serious: Yes (Other)
  Sender: PFIZER
  Company Number: US-PFIZER INC-PV202400153279

PATIENT
  Age: 45 Year
  Sex: Female
  Weight: 102 kg

DRUGS (22)
  1. AZULFIDINE [Suspect]
     Active Substance: SULFASALAZINE
     Dosage: TAKE 2 TABLETS (1,000 MG) BY MOUTH IN THE MORNING AND AT BEDTIME
     Route: 048
     Dates: end: 20241021
  2. RINVOQ [Suspect]
     Active Substance: UPADACITINIB
     Dosage: 24 HOUR
     Dates: end: 20241021
  3. NALTREXONE [Suspect]
     Active Substance: NALTREXONE
     Dosage: UNK
     Dates: end: 20241021
  4. ALBUTEROL [Concomitant]
     Active Substance: ALBUTEROL
     Dosage: INHALE 2 PUFFS BY MOUTH EVERY 4 HOURS FOR 10 DAYS
  5. ASPIRIN [Concomitant]
     Active Substance: ASPIRIN
     Dosage: 81 MG ORAL SUSPENSION
     Route: 048
  6. AVALIDE [Concomitant]
     Active Substance: HYDROCHLOROTHIAZIDE\IRBESARTAN
     Dosage: TAKE 1 TABLET BY MOUTH IN THE MORNING
     Route: 048
  7. FLEXERIL [Concomitant]
     Active Substance: CYCLOBENZAPRINE HYDROCHLORIDE
     Dosage: TAKE 1 TABLET (5 MG) BY MOUTH IF NEEDED IN THE MORNING AND AT BEDTIME
     Route: 048
  8. FOLVITE [Concomitant]
     Active Substance: FOLIC ACID
     Dosage: TAKE 1 TABLET (1,000 MCG) BY MOUTH IN THE MORNING
     Route: 048
  9. K TAB [Concomitant]
     Dosage: TAKE 1 TABLET (20 MEQ) BY MOUTH IN THE MORNING
     Route: 048
  10. LEXAPRO [Concomitant]
     Active Substance: ESCITALOPRAM OXALATE
     Dosage: TAKE 1 TABLET (10 MG) BY MOUTH IN THE MORNING
     Route: 048
  11. LONITEN [Concomitant]
     Active Substance: MINOXIDIL
     Dosage: UNK
  12. LOTEMAX [Concomitant]
     Active Substance: LOTEPREDNOL ETABONATE
     Dosage: INSTILL DROP INTO BOTH EYES THREE TIMES A DAY FOR 1 WEEK
     Route: 047
  13. LOTEMAX [Concomitant]
     Active Substance: LOTEPREDNOL ETABONATE
     Dosage: THEN TWICE DAILY FOR 1 WEEK
     Route: 047
  14. LOTEMAX [Concomitant]
     Active Substance: LOTEPREDNOL ETABONATE
     Dosage: THEN ONCE DAILY FOR 2 WEEKS
     Route: 047
  15. LIPITOR [Concomitant]
     Active Substance: ATORVASTATIN CALCIUM
     Dosage: UNK
  16. MOBIC [Concomitant]
     Active Substance: MELOXICAM
     Dosage: TAKE 1 TABLET (7.5 MG) BY MOUTH. TAKE WITH FOOD
     Route: 048
  17. NEURONTIN [Concomitant]
     Active Substance: GABAPENTIN
     Dosage: TAKE 1 CAPSULE (100 MG) BY MOUTH AT BEDTIME
     Route: 048
  18. OZEMPIC [Concomitant]
     Active Substance: SEMAGLUTIDE
     Dosage: INJECT 2 MG SUBCUTANEOUSLY ONCE A WEEK
     Route: 058
  19. PRILOSEC [Concomitant]
     Active Substance: OMEPRAZOLE MAGNESIUM
     Dosage: TAKE 1 CAPSULE (20 MG) BY MOUTH 2 (TWO) TIMES EACH DAY
     Route: 048
  20. PROSCAR [Concomitant]
     Active Substance: FINASTERIDE
     Dosage: UNK
  21. TENORMIN [Concomitant]
     Active Substance: ATENOLOL
     Dosage: TAKE 1 TABLET (25 MG) BY MOUTH IN THE MORNING
     Route: 048
  22. XANAX [Concomitant]
     Active Substance: ALPRAZOLAM
     Dosage: TAKE BY MOUTH
     Route: 048

REACTIONS (25)
  - Pneumonia [Not Recovered/Not Resolved]
  - Deafness [Not Recovered/Not Resolved]
  - Retinal tear [Not Recovered/Not Resolved]
  - Retinal detachment [Not Recovered/Not Resolved]
  - Uterine haemorrhage [Not Recovered/Not Resolved]
  - Gastrointestinal disorder [Not Recovered/Not Resolved]
  - Hypoaesthesia [Not Recovered/Not Resolved]
  - Jaundice [Not Recovered/Not Resolved]
  - Vomiting [Not Recovered/Not Resolved]
  - Chills [Not Recovered/Not Resolved]
  - Blood creatine phosphokinase increased [Not Recovered/Not Resolved]
  - Full blood count abnormal [Not Recovered/Not Resolved]
  - Insomnia [Not Recovered/Not Resolved]
  - Biopsy bone marrow [Not Recovered/Not Resolved]
  - Headache [Not Recovered/Not Resolved]
  - Alopecia [Not Recovered/Not Resolved]
  - Liver disorder [Not Recovered/Not Resolved]
  - Gait disturbance [Not Recovered/Not Resolved]
  - Dry mouth [Not Recovered/Not Resolved]
  - Dry eye [Not Recovered/Not Resolved]
  - Ear infection [Not Recovered/Not Resolved]
  - Fungal infection [Not Recovered/Not Resolved]
  - COVID-19 [Not Recovered/Not Resolved]
  - Pain [Not Recovered/Not Resolved]
  - Infection [Not Recovered/Not Resolved]

NARRATIVE: CASE EVENT DATE: 20180101
